FAERS Safety Report 16573798 (Version 3)
Quarter: 2019Q3

REPORT INFORMATION
  Report Type: Spontaneous
  Country: US (occurrence: US)
  Receive Date: 20190715
  Receipt Date: 20190920
  Transmission Date: 20191004
  Serious: Yes (Hospitalization)
  Sender: FDA-Public Use
  Company Number: US-CELGENEUS-USA-20190703519

PATIENT
  Age: 10 Year
  Sex: Male

DRUGS (10)
  1. THALOMID [Suspect]
     Active Substance: THALIDOMIDE
     Indication: PRODUCT ADMINISTERED TO PATIENT OF INAPPROPRIATE AGE
     Dosage: 150 MILLIGRAM
     Route: 048
     Dates: start: 201904
  2. CYCLOPHOSPHAMIDE. [Concomitant]
     Active Substance: CYCLOPHOSPHAMIDE
     Indication: ATYPICAL TERATOID/RHABDOID TUMOUR OF CNS
     Dosage: 75 MILLIGRAM
     Route: 065
     Dates: start: 20190311
  3. CYTARABINE. [Concomitant]
     Active Substance: CYTARABINE
     Indication: ATYPICAL TERATOID/RHABDOID TUMOUR OF CNS
     Dosage: 50 MILLIGRAM
     Route: 065
     Dates: start: 20190311
  4. THALOMID [Suspect]
     Active Substance: THALIDOMIDE
     Indication: ATYPICAL TERATOID/RHABDOID TUMOUR OF CNS
     Dosage: 200 MILLIGRAM
     Route: 048
     Dates: start: 201906
  5. AVASTIN [Concomitant]
     Active Substance: BEVACIZUMAB
     Indication: ATYPICAL TERATOID/RHABDOID TUMOUR OF CNS
     Route: 065
     Dates: start: 20190311, end: 20190522
  6. THALOMID [Suspect]
     Active Substance: THALIDOMIDE
     Indication: BRAIN NEOPLASM
     Dosage: 100 MILLIGRAM
     Route: 048
     Dates: start: 20190311
  7. THALOMID [Suspect]
     Active Substance: THALIDOMIDE
     Dosage: 100 MILLIGRAM
     Route: 048
     Dates: start: 2019
  8. THALOMID [Suspect]
     Active Substance: THALIDOMIDE
     Dosage: 150 MILLIGRAM
     Route: 048
     Dates: start: 20190722
  9. ETOPOSIDE. [Concomitant]
     Active Substance: ETOPOSIDE
     Indication: ATYPICAL TERATOID/RHABDOID TUMOUR OF CNS
     Dosage: 50 MILLIGRAM
     Route: 065
     Dates: start: 20190311
  10. CYTARABINE. [Concomitant]
     Active Substance: CYTARABINE
     Dosage: 50 MILLIGRAM
     Route: 065
     Dates: start: 20190311

REACTIONS (3)
  - Pyrexia [Unknown]
  - Anaemia [Recovered/Resolved]
  - Neutropenia [Recovered/Resolved]

NARRATIVE: CASE EVENT DATE: 2019
